FAERS Safety Report 19913656 (Version 3)
Quarter: 2023Q1

REPORT INFORMATION
  Report Type: Spontaneous
  Country: US (occurrence: US)
  Receive Date: 20211004
  Receipt Date: 20230118
  Transmission Date: 20230417
  Serious: No
  Sender: FDA-Public Use
  Company Number: US-BIOGEN-2021BI01054603

PATIENT
  Sex: Male

DRUGS (3)
  1. VUMERITY [Suspect]
     Active Substance: DIROXIMEL FUMARATE
     Indication: Multiple sclerosis
     Route: 050
     Dates: start: 20200406
  2. VUMERITY [Suspect]
     Active Substance: DIROXIMEL FUMARATE
     Route: 050
     Dates: end: 202108
  3. VUMERITY [Suspect]
     Active Substance: DIROXIMEL FUMARATE
     Route: 050

REACTIONS (2)
  - Product dose omission issue [Unknown]
  - Hypersensitivity [Unknown]
